FAERS Safety Report 15202385 (Version 1)
Quarter: 2018Q3

REPORT INFORMATION
  Report Type: Spontaneous
  Country: US (occurrence: US)
  Receive Date: 20180726
  Receipt Date: 20180726
  Transmission Date: 20181010
  Serious: Yes (Death, Hospitalization)
  Sender: FDA-Public Use
  Company Number: US-TARO PHARMACEUTICALS USA.,INC-2018SUN00374

PATIENT
  Age: 35 Year
  Sex: Male

DRUGS (1)
  1. AMIODARONE [Suspect]
     Active Substance: AMIODARONE
     Indication: VENTRICULAR TACHYCARDIA
     Dosage: 200 MG, DAILY
     Route: 065

REACTIONS (4)
  - Cardiogenic shock [Fatal]
  - Thyrotoxic crisis [Fatal]
  - Thyroiditis [Unknown]
  - Multiple organ dysfunction syndrome [Fatal]
